FAERS Safety Report 7526508-8 (Version None)
Quarter: 2011Q2

REPORT INFORMATION
  Report Type: 
  Country: None (occurrence: None)
  Receive Date: 20110606
  Receipt Date: 20110527
  Transmission Date: 20111010
  Serious: Yes (Death, Hospitalization, Other)
  Sender: FDA-Public Use
  Company Number: JP-PFIZER INC-2010120280

PATIENT
  Age: 67 Year
  Sex: Male
  Weight: 46 kg

DRUGS (15)
  1. KYTRIL [Concomitant]
     Indication: PREMEDICATION
     Dosage: 3 MG, UNK
     Route: 041
     Dates: start: 20100802, end: 20100823
  2. FLUOROURACIL [Concomitant]
     Dosage: 2400 MG/M2/D1-2, UNK
     Route: 041
     Dates: start: 20100802, end: 20100823
  3. DEXART [Concomitant]
     Indication: PREMEDICATION
     Dosage: 6.6 MG, UNK
     Route: 041
     Dates: start: 20100802, end: 20100823
  4. HACHIAZULE [Concomitant]
     Indication: STOMATITIS
     Dosage: UNK
     Route: 002
     Dates: start: 20100830
  5. LEVOFLOXACIN [Concomitant]
     Indication: PYREXIA
     Dosage: 500 MG, UNK
     Route: 048
     Dates: start: 20100830, end: 20100906
  6. CEFDINIR [Concomitant]
     Indication: PYREXIA
     Dosage: 300 MG, 3X/DAY
     Route: 048
     Dates: start: 20100906
  7. MYSER [Concomitant]
     Indication: DRY SKIN
     Dosage: UNK
     Route: 061
     Dates: start: 20100101
  8. ACETAMINOPHEN [Concomitant]
     Indication: PYREXIA
     Dosage: 300 MG, UNK
     Route: 048
     Dates: start: 20100906
  9. TAMSULOSIN HCL [Concomitant]
     Indication: BENIGN PROSTATIC HYPERPLASIA
     Dosage: 0.2 MG, UNK
     Route: 048
     Dates: start: 20090101
  10. FLUOROURACIL [Concomitant]
     Indication: COLON CANCER
     Dosage: 400 MG/M2, UNK
     Route: 040
     Dates: start: 20100802, end: 20100823
  11. AVASTIN [Concomitant]
     Indication: COLON CANCER
     Dosage: 5 MG/KG, UNK
     Route: 041
     Dates: start: 20100802, end: 20100823
  12. CAMPTOSAR [Suspect]
     Indication: COLON CANCER
     Dosage: 180 MG/M2, UNK
     Route: 041
     Dates: start: 20100802, end: 20100823
  13. ISOVORIN [Concomitant]
     Indication: COLON CANCER
     Dosage: 200 MG/M2, UNK
     Route: 041
     Dates: start: 20100802, end: 20100823
  14. LOPERAMIDE HCL [Concomitant]
     Indication: DIARRHOEA
     Dosage: UNK
     Route: 048
     Dates: start: 20100809, end: 20100812
  15. DEXALTIN [Concomitant]
     Indication: STOMATITIS
     Dosage: UNK
     Route: 061
     Dates: start: 20100830

REACTIONS (3)
  - HAEMOGLOBIN DECREASED [None]
  - PNEUMONIA [None]
  - RENAL IMPAIRMENT [None]
